FAERS Safety Report 16487526 (Version 1)
Quarter: 2019Q3

REPORT INFORMATION
  Report Type: Spontaneous
  Country: US (occurrence: US)
  Receive Date: 20190626
  Receipt Date: 20190626
  Transmission Date: 20191004
  Serious: Yes (Other)
  Sender: FDA-Public Use
  Company Number: None

PATIENT
  Age: 70 Year
  Sex: Male

DRUGS (20)
  1. METFORMIN TAB 1000 MG [Concomitant]
  2. NEXIUM CAP 40 MG [Concomitant]
  3. METOPROLOL SUC TAB 50 MG ER [Concomitant]
  4. BYETTA INJ 10 MCG [Concomitant]
  5. COQ-10 CAP 100 MG [Concomitant]
  6. ABILIFY TAB 5 MG [Concomitant]
  7. REPATHA [Suspect]
     Active Substance: EVOLOCUMAB
     Indication: HYPERLIPIDAEMIA
     Dosage: ?          OTHER FREQUENCY:EVERY 2 WEEKS;?
     Route: 058
     Dates: start: 20180418
  8. CYCLOBENZAPRINE TAB 10 MG [Concomitant]
  9. LYSINE CAP 500 MG [Concomitant]
  10. CYMBALTA CAP 60 MG [Concomitant]
  11. TESTIM GEL 1% [Concomitant]
  12. LISINOPRIL TAB 10 MG [Concomitant]
  13. TRAZODONE TAB 50 MG [Concomitant]
  14. LANTUS INJ 100/ML [Concomitant]
  15. TRICOR TAB 145 MG [Concomitant]
  16. LORAZEPAM TAB 1 MG [Concomitant]
  17. GLYBURIDE TAB 2.5 MG [Concomitant]
  18. GELATIN CAP 650 MG [Concomitant]
  19. DHEA TAB 25 MG [Concomitant]
  20. CRESTOR TAB 20 MG [Concomitant]

REACTIONS (1)
  - Spinal operation [None]

NARRATIVE: CASE EVENT DATE: 20190523
